FAERS Safety Report 24808994 (Version 1)
Quarter: 2025Q1

REPORT INFORMATION
  Report Type: Spontaneous
  Country: US (occurrence: US)
  Receive Date: 20250106
  Receipt Date: 20250106
  Transmission Date: 20250408
  Serious: Yes (Hospitalization, Other)
  Sender: TERSERA THERAPEUTICS
  Company Number: US-TERSERA THERAPEUTICS LLC-2024TRS004833

PATIENT

DRUGS (8)
  1. PRIALT [Suspect]
     Active Substance: ZICONOTIDE ACETATE
     Indication: Spinal cord injury
     Route: 037
  2. PRIALT [Suspect]
     Active Substance: ZICONOTIDE ACETATE
     Indication: Muscle spasticity
  3. BUPIVACAINE [Suspect]
     Active Substance: BUPIVACAINE
     Indication: Spinal cord injury
     Route: 037
  4. BUPIVACAINE [Suspect]
     Active Substance: BUPIVACAINE
     Indication: Muscle spasticity
  5. FENTANYL [Suspect]
     Active Substance: FENTANYL
     Indication: Muscle spasticity
     Route: 037
  6. FENTANYL [Suspect]
     Active Substance: FENTANYL
     Indication: Spinal cord injury
  7. BACLOFEN [Suspect]
     Active Substance: BACLOFEN
     Indication: Spinal cord injury
     Route: 037
  8. BACLOFEN [Suspect]
     Active Substance: BACLOFEN
     Indication: Muscle spasticity

REACTIONS (4)
  - Respiratory distress [Recovering/Resolving]
  - Mental status changes [Recovering/Resolving]
  - Off label use [Unknown]
  - Product use issue [Unknown]

NARRATIVE: CASE EVENT DATE: 20240920
